FAERS Safety Report 19957363 (Version 1)
Quarter: 2021Q4

REPORT INFORMATION
  Report Type: Spontaneous
  Country: CA (occurrence: CA)
  Receive Date: 20211014
  Receipt Date: 20211014
  Transmission Date: 20220303
  Serious: Yes (Other)
  Sender: FDA-Public Use
  Company Number: CA-ELI_LILLY_AND_COMPANY-CA202110001261

PATIENT
  Age: 57 Year
  Sex: Female

DRUGS (10)
  1. PEMETREXED [Suspect]
     Active Substance: PEMETREXED
     Indication: Colon cancer stage III
     Dosage: 900 MG/M2, CYCLICAL
     Route: 042
  2. OXALIPLATIN [Suspect]
     Active Substance: OXALIPLATIN
     Indication: Colon cancer stage III
     Dosage: 130 MG/M2, CYCLICAL EVERY 21 DAYS
     Route: 065
  3. OXALIPLATIN [Suspect]
     Active Substance: OXALIPLATIN
     Dosage: 110.5 MG/M2, CYCLICAL
     Route: 065
  4. CAPECITABINE [Suspect]
     Active Substance: CAPECITABINE
     Indication: Colon cancer stage III
     Dosage: UNK, UNKNOWN
     Route: 065
  5. VITAMIN B12 [Concomitant]
     Active Substance: CYANOCOBALAMIN
     Indication: Supportive care
     Dosage: UNK, UNKNOWN
     Route: 030
  6. DEXAMETHASONE [Concomitant]
     Active Substance: DEXAMETHASONE
     Indication: Supportive care
     Dosage: 4 MG, 2 EVERY 1 DAY
     Route: 048
  7. FOLIC ACID [Concomitant]
     Active Substance: FOLIC ACID
     Indication: Supportive care
     Dosage: 400 UG, DAILY
     Route: 048
  8. METOCLOPRAMIDE [Concomitant]
     Active Substance: METOCLOPRAMIDE
     Indication: Vomiting
     Dosage: 10 MG, EVERY 4 HRS
     Route: 048
  9. METOCLOPRAMIDE [Concomitant]
     Active Substance: METOCLOPRAMIDE
     Indication: Nausea
  10. ONDANSETRON [Concomitant]
     Active Substance: ONDANSETRON
     Indication: Supportive care
     Dosage: 8 MG, 2 EVERY 1 DAY
     Route: 048

REACTIONS (22)
  - Dysaesthesia [Recovered/Resolved]
  - Joint stiffness [Unknown]
  - Papillary cystadenoma lymphomatosum [Unknown]
  - Cardiotoxicity [Recovered/Resolved]
  - Electrocardiogram T wave inversion [Recovered/Resolved]
  - Muscle tightness [Recovered/Resolved]
  - Troponin increased [Recovered/Resolved]
  - Muscular weakness [Recovered/Resolved]
  - Toxicity to various agents [Recovered/Resolved]
  - Chest discomfort [Recovered/Resolved]
  - Malignant neoplasm progression [Unknown]
  - Fatigue [Recovered/Resolved]
  - Mouth ulceration [Unknown]
  - Rash pruritic [Recovered/Resolved]
  - Rash maculo-papular [Recovered/Resolved]
  - Oral pain [Recovered/Resolved]
  - Sinus tachycardia [Recovered/Resolved]
  - Aphthous ulcer [Recovered/Resolved]
  - Neuropathy peripheral [Recovered/Resolved]
  - Neutropenia [Recovered/Resolved]
  - Stomatitis [Recovered/Resolved]
  - Off label use [Unknown]
